FAERS Safety Report 4282373-6 (Version None)
Quarter: 2004Q1

REPORT INFORMATION
  Report Type: 
  Country: None (occurrence: None)
  Receive Date: 20040130
  Receipt Date: 20040113
  Transmission Date: 20041129
  Serious: Yes (Hospitalization)
  Sender: FDA-Public Use
  Company Number: WAES 0401NZL00009

PATIENT
  Age: 90 Year
  Sex: Female

DRUGS (2)
  1. ACETAMINOPHEN [Concomitant]
  2. VIOXX [Suspect]
     Route: 048
     Dates: start: 20020101

REACTIONS (2)
  - ANAEMIA [None]
  - GASTRIC ULCER [None]
